FAERS Safety Report 7809509-1 (Version None)
Quarter: 2011Q4

REPORT INFORMATION
  Report Type: 
  Country: None (occurrence: None)
  Receive Date: 20111012
  Receipt Date: 20111004
  Transmission Date: 20120403
  Serious: Yes (Other)
  Sender: FDA-Public Use
  Company Number: PHEH2011US06357

PATIENT

DRUGS (1)
  1. SANDOSTATIN LAR [Suspect]
     Dosage: UNK
     Route: 065

REACTIONS (1)
  - HALLUCINATION [None]
